FAERS Safety Report 18476774 (Version 1)
Quarter: 2020Q4

REPORT INFORMATION
  Report Type: Spontaneous
  Country: US (occurrence: US)
  Receive Date: 20201107
  Receipt Date: 20201107
  Transmission Date: 20210114
  Serious: Yes (Life-Threatening, Hospitalization, Other)
  Sender: FDA-Public Use
  Company Number: US-AUROBINDO-AUR-APL-2020-054341

PATIENT
  Age: 64 Year
  Sex: Male

DRUGS (1)
  1. PIPERACILLIN AND TAZOBACTAM [Suspect]
     Active Substance: PIPERACILLIN SODIUM\TAZOBACTAM SODIUM
     Indication: EVIDENCE BASED TREATMENT
     Dosage: UNK
     Route: 065

REACTIONS (7)
  - Electrocardiogram QRS complex shortened [Recovering/Resolving]
  - Drug hypersensitivity [Recovering/Resolving]
  - Hypersensitivity myocarditis [Recovering/Resolving]
  - Rash maculo-papular [Recovering/Resolving]
  - Electrocardiogram T wave abnormal [Recovering/Resolving]
  - Pericardial effusion [Recovering/Resolving]
  - Pulmonary oedema [Recovering/Resolving]
